FAERS Safety Report 23453543 (Version 1)
Quarter: 2024Q1

REPORT INFORMATION
  Report Type: Spontaneous
  Country: US (occurrence: US)
  Receive Date: 20240129
  Receipt Date: 20240129
  Transmission Date: 20240410
  Serious: No
  Sender: FDA-Public Use
  Company Number: US-MAYNE PHARMA-2023MYN000631

PATIENT

DRUGS (1)
  1. NEXTSTELLIS [Suspect]
     Active Substance: DROSPIRENONE\ESTETROL MONOHYDRATE
     Indication: Vaginal haemorrhage
     Dosage: 3 MG, QD; 14.2 MG
     Route: 048
     Dates: start: 20231018, end: 20231019

REACTIONS (6)
  - Migraine [Recovered/Resolved]
  - Muscular weakness [Recovered/Resolved]
  - Hypokinesia [Recovered/Resolved]
  - Feeding disorder [Recovered/Resolved]
  - Vomiting [Recovered/Resolved]
  - Off label use [Unknown]

NARRATIVE: CASE EVENT DATE: 20231018
